FAERS Safety Report 4457828-1 (Version None)
Quarter: 2004Q3

REPORT INFORMATION
  Report Type: 
  Country: None (occurrence: None)
  Receive Date: 20040924
  Receipt Date: 20031104
  Transmission Date: 20050211
  Serious: Yes (Death)
  Sender: FDA-Public Use
  Company Number: US-MERCK-0311USA00267

PATIENT
  Age: 54 Year
  Sex: Male

DRUGS (5)
  1. PRAVACHOL [Concomitant]
     Route: 065
     Dates: start: 19960101
  2. PRAVACHOL [Concomitant]
     Route: 065
     Dates: end: 20001022
  3. ZANTAC [Concomitant]
     Indication: ULCER
     Route: 065
     Dates: start: 19960101, end: 20001022
  4. VIOXX [Suspect]
     Indication: ARTHRALGIA
     Route: 048
     Dates: start: 20000628, end: 20001022
  5. VIOXX [Suspect]
     Indication: TENDONITIS
     Route: 048
     Dates: start: 20000628, end: 20001022

REACTIONS (3)
  - CARDIAC ARREST [None]
  - CORONARY ARTERY DISEASE [None]
  - FEELING ABNORMAL [None]
